FAERS Safety Report 21965520 (Version 1)
Quarter: 2023Q1

REPORT INFORMATION
  Report Type: Spontaneous
  Country: US (occurrence: US)
  Receive Date: 20230208
  Receipt Date: 20230208
  Transmission Date: 20230417
  Serious: Yes (Hospitalization)
  Sender: FDA-Public Use
  Company Number: US-BRISTOL-MYERS SQUIBB COMPANY-2023-017710

PATIENT
  Age: 77 Year
  Sex: Female

DRUGS (1)
  1. REVLIMID [Suspect]
     Active Substance: LENALIDOMIDE
     Indication: Plasma cell myeloma
     Dosage: FREQUENCY: TAKE 1CAPSULE BY MOUTH ONE TIME PER DAY FOR 21 DAYS, THEN 1 WEEK OFF. REPEAT EVERY 28 DAY
     Route: 048
     Dates: start: 20221104

REACTIONS (1)
  - White blood cell count decreased [Unknown]
